FAERS Safety Report 16166815 (Version 1)
Quarter: 2019Q2

REPORT INFORMATION
  Report Type: Other
  Country: ES (occurrence: ES)
  Receive Date: 20190407
  Receipt Date: 20190407
  Transmission Date: 20190711
  Serious: Yes (Other)
  Sender: FDA-Public Use
  Company Number: ES-CELLTRION INC.-2019ES020063

PATIENT

DRUGS (16)
  1. REXER [Concomitant]
     Active Substance: MIRTAZAPINE
     Dosage: UNK
     Route: 002
  2. DAFLON [BIOFLAVONOIDS;DIOSMIN;HESPERIDIN] [Concomitant]
     Dosage: SP
     Route: 048
  3. URBASON DEPOT [Concomitant]
     Indication: PREMEDICATION
     Dosage: 20 MG, 1 TOTAL (URBASON 20MG I.V.)
     Route: 042
     Dates: start: 20190305, end: 20190305
  4. EMCONCOR COR [Concomitant]
     Active Substance: BISOPROLOL
     Dosage: UNK
     Route: 048
  5. POLARAMINE [Concomitant]
     Active Substance: DEXCHLORPHENIRAMINE MALEATE
     Indication: PREMEDICATION
     Dosage: 1 DF, 1 TOTAL (POLARAMINE 1 AMP IV)
     Route: 042
     Dates: start: 20190305, end: 20190305
  6. LEXATIN [BROMAZEPAM] [Concomitant]
     Active Substance: BROMAZEPAM
     Dosage: UNK
     Route: 048
  7. OPTOVITE B12 [Concomitant]
     Active Substance: CYANOCOBALAMIN
     Dosage: 1 DF, 1 MONTH (OPTOVITE B12 MENSUAL)
     Route: 030
  8. IBP [IBUPROFEN] [Concomitant]
     Dosage: UNK
     Route: 048
  9. REMSIMA [Suspect]
     Active Substance: INFLIXIMAB
     Indication: CROHN^S DISEASE
     Dosage: 400 MG, 8 WEEKS (400 MG C/8 SEMANAS. INFORME SEG. CCEE DE DIGESTIVO 22/01/2019: ^INICIO DE TRATAMIEN
     Route: 042
     Dates: start: 20190122, end: 20190305
  10. DEMILOS [Concomitant]
     Active Substance: CALCIUM CARBONATE\CHOLECALCIFEROL
     Dosage: 1 DF, 1 DAYS (INFORME SEG. CCEE DE DIGESTIVO 18/02/2019:^DEMILOS 1 CP AL DIA MIENTRAS TOME PREDNISON
     Route: 002
     Dates: start: 201902
  11. FORTASEC [LOPERAMIDE] [Concomitant]
     Dosage: UNK
     Route: 048
  12. CITALOPRAM [Concomitant]
     Active Substance: CITALOPRAM HYDROBROMIDE
     Dosage: UNK
     Route: 048
  13. METOJECT [Concomitant]
     Active Substance: METHOTREXATE SODIUM
     Dosage: 15 MG, 1 WEEK (INFORME SEG. CCEE  DE DIGESTIVO 22/01/2019: ^MTX 15 SC UNA INYECCI?N SEMANAL.^)
     Route: 058
     Dates: start: 201901
  14. PREDNISONA [Concomitant]
     Active Substance: PREDNISONE
     Dosage: 1 DF, 24 HOUR (INFORME SEG. CCEE  DE DIGESTIVO 18/02/2019: ^PREDNISONA 60 MG AL DESAYUNO 1 SEMANA, B
     Route: 048
     Dates: start: 201902
  15. ACFOL [Concomitant]
     Active Substance: FOLIC ACID
     Dosage: 1 DF, 1 DAY (1 CPO AL DIA)
     Route: 048
  16. SEPTRIN [Concomitant]
     Active Substance: SULFAMETHOXAZOLE\TRIMETHOPRIM
     Dosage: 3 DF, 1 WEEK (INFORME SEG. CCEE  DE DIGESTIVO 18/02/2019: ^SEPTRIN FORTE 1 CP LUNES, MIERCOLES Y VIE
     Route: 048
     Dates: start: 201902

REACTIONS (5)
  - Flushing [Recovered/Resolved]
  - Nausea [Recovered/Resolved]
  - Dizziness [Recovered/Resolved]
  - Respiratory distress [Recovered/Resolved]
  - Underdose [Unknown]

NARRATIVE: CASE EVENT DATE: 20190305
